FAERS Safety Report 9059837 (Version 1)
Quarter: 2013Q1

REPORT INFORMATION
  Report Type: Spontaneous
  Country: US (occurrence: None)
  Receive Date: 20130206
  Receipt Date: 20130206
  Transmission Date: 20140127
  Serious: Yes (Hospitalization)
  Sender: FDA-Public Use
  Company Number: None

PATIENT
  Age: 32 Year
  Sex: Female
  Weight: 53.52 kg

DRUGS (1)
  1. BOTOX [Suspect]
     Indication: SKIN WRINKLING
     Dosage: 28 UNITS 1
     Route: 023
     Dates: start: 20120214, end: 20120214

REACTIONS (6)
  - Pharyngeal oedema [None]
  - Palpitations [None]
  - Hypertension [None]
  - Apparent death [None]
  - Toxicity to various agents [None]
  - Malaise [None]
